FAERS Safety Report 6896379-1 (Version None)
Quarter: 2010Q3

REPORT INFORMATION
  Report Type: 
  Country: None (occurrence: None)
  Receive Date: 20100802
  Receipt Date: 20090130
  Transmission Date: 20110219
  Serious: No
  Sender: FDA-Public Use
  Company Number: US-PFIZER INC-2009164498

PATIENT
  Sex: Male

DRUGS (9)
  1. NORVASC [Suspect]
     Indication: BLOOD PRESSURE ABNORMAL
     Dates: start: 20060306, end: 20060101
  2. CADUET [Suspect]
     Dosage: UNK
     Dates: start: 20090115
  3. FENOPROFEN [Concomitant]
     Dosage: 600 MG, UNK
  4. ALLEGRA D 24 HOUR [Concomitant]
     Dosage: UNK
  5. FINASTERIDE [Concomitant]
     Dosage: UNK
  6. NEXIUM [Concomitant]
     Dosage: UNK
  7. XOPENEX [Concomitant]
     Dosage: UNK
  8. ALL OTHER THERAPEUTIC PRODUCTS [Concomitant]
     Dosage: UNK
  9. CICLESONIDE [Concomitant]

REACTIONS (2)
  - CONDITION AGGRAVATED [None]
  - COUGH [None]
